FAERS Safety Report 19465387 (Version 1)
Quarter: 2021Q2

REPORT INFORMATION
  Report Type: Spontaneous
  Country: US (occurrence: US)
  Receive Date: 20210624
  Receipt Date: 20210624
  Transmission Date: 20210717
  Serious: Yes (Death, Hospitalization)
  Sender: FDA-Public Use
  Company Number: US-HORIZON THERAPEUTICS-HZN-2021-003236

PATIENT

DRUGS (1)
  1. RAYOS [Suspect]
     Active Substance: PREDNISONE
     Indication: BACK PAIN
     Dosage: UNK

REACTIONS (6)
  - Encephalitis viral [Fatal]
  - Coinfection [Fatal]
  - Urinary tract infection [Unknown]
  - Varicella zoster virus infection [Fatal]
  - Subarachnoid haemorrhage [Fatal]
  - Acute kidney injury [Fatal]
